FAERS Safety Report 15015811 (Version 1)
Quarter: 2018Q2

REPORT INFORMATION
  Report Type: Report from Study
  Country: None (occurrence: US)
  Receive Date: 20180615
  Receipt Date: 20180615
  Transmission Date: 20180711
  Serious: Yes (Other)
  Sender: FDA-Public Use
  Company Number: US-ABBVIE-18K-163-2385859-00

PATIENT
  Age: 64 Year
  Sex: Male

DRUGS (1)
  1. HUMIRA [Suspect]
     Active Substance: ADALIMUMAB
     Indication: PSORIATIC ARTHROPATHY
     Route: 058

REACTIONS (6)
  - Myocardial calcification [Recovering/Resolving]
  - Weight decreased [Recovering/Resolving]
  - Haemoptysis [Not Recovered/Not Resolved]
  - Post procedural complication [Recovering/Resolving]
  - Organising pneumonia [Not Recovered/Not Resolved]
  - Cholecystectomy [Recovering/Resolving]

NARRATIVE: CASE EVENT DATE: 2018
